FAERS Safety Report 8456284-6 (Version None)
Quarter: 2012Q2

REPORT INFORMATION
  Report Type: 
  Country: None (occurrence: None)
  Receive Date: 20120621
  Receipt Date: 20120608
  Transmission Date: 20120825
  Serious: Yes (Hospitalization, Other)
  Sender: FDA-Public Use
  Company Number: US-ROCHE-1076588

PATIENT
  Sex: Female
  Weight: 59.02 kg

DRUGS (5)
  1. BONIVA [Suspect]
     Indication: OSTEOPENIA
     Route: 048
  2. FELODIPINE [Concomitant]
  3. MAXZIDE [Concomitant]
     Dosage: DOSE: 50/75
  4. QUINAPRIL [Concomitant]
  5. TERAZOSIN HCL [Concomitant]

REACTIONS (2)
  - SPONDYLOLISTHESIS [None]
  - FEMUR FRACTURE [None]
